FAERS Safety Report 21505094 (Version 2)
Quarter: 2023Q1

REPORT INFORMATION
  Report Type: Spontaneous
  Country: US (occurrence: US)
  Receive Date: 20221026
  Receipt Date: 20230213
  Transmission Date: 20230417
  Serious: Yes (Other)
  Sender: FDA-Public Use
  Company Number: US-ORGANON-O2210USA001480

PATIENT
  Age: 37 Year
  Sex: Female
  Weight: 77.098 kg

DRUGS (2)
  1. NEXPLANON [Suspect]
     Active Substance: ETONOGESTREL
     Dosage: 1 ROD
     Route: 059
     Dates: start: 20201013
  2. DIFLUCAN [Suspect]
     Active Substance: FLUCONAZOLE
     Dosage: 150 MG TABLET, TOOK 1 ORAL (PO) AND REPEAT IN 48 HOURS
     Route: 048
     Dates: start: 20201013, end: 20220921

REACTIONS (2)
  - Ectopic pregnancy with contraceptive device [Recovered/Resolved]
  - Unintended pregnancy [Recovered/Resolved]

NARRATIVE: CASE EVENT DATE: 20220904
